FAERS Safety Report 22385082 (Version 1)
Quarter: 2023Q2

REPORT INFORMATION
  Report Type: Spontaneous
  Country: US (occurrence: None)
  Receive Date: 20230530
  Receipt Date: 20230530
  Transmission Date: 20230721
  Serious: Yes (Hospitalization)
  Sender: FDA-Public Use
  Company Number: 2023A120410

PATIENT
  Age: 582 Month
  Sex: Female

DRUGS (1)
  1. SYMBICORT [Suspect]
     Active Substance: BUDESONIDE\FORMOTEROL FUMARATE DIHYDRATE
     Route: 055

REACTIONS (10)
  - Transient ischaemic attack [Unknown]
  - Bipolar II disorder [Unknown]
  - Mobility decreased [Unknown]
  - Feeding disorder [Unknown]
  - Candida infection [Unknown]
  - Insomnia [Unknown]
  - Tremor [Unknown]
  - Pneumonia [Unknown]
  - Product use issue [Unknown]
  - Device use issue [Unknown]

NARRATIVE: CASE EVENT DATE: 20221201
